FAERS Safety Report 8161273-5 (Version None)
Quarter: 2012Q1

REPORT INFORMATION
  Report Type: 
  Country: None (occurrence: None)
  Receive Date: 20120222
  Receipt Date: 20120222
  Transmission Date: 20120608
  Serious: Yes (Hospitalization)
  Sender: FDA-Public Use
  Company Number: None

PATIENT
  Sex: Female
  Weight: 67 kg

DRUGS (3)
  1. VITAMIN D2 [Suspect]
     Dosage: 250 MG
  2. ZOMETA [Suspect]
     Dosage: 4 MG
  3. CALCIUM CARBONATE [Suspect]
     Dosage: 315 MG

REACTIONS (1)
  - PYREXIA [None]
